FAERS Safety Report 17611218 (Version 5)
Quarter: 2020Q2

REPORT INFORMATION
  Report Type: Spontaneous
  Country: US (occurrence: US)
  Receive Date: 20200401
  Receipt Date: 20200507
  Transmission Date: 20200713
  Serious: Yes (Other)
  Sender: FDA-Public Use
  Company Number: US-SA-2020SA079701

PATIENT
  Sex: Male

DRUGS (1)
  1. LANTUS SOLOSTAR [Suspect]
     Active Substance: INSULIN GLARGINE
     Indication: TYPE 2 DIABETES MELLITUS
     Dosage: 12 IU, TID (MEALS ON A SLIDING SCALE)
     Route: 065

REACTIONS (3)
  - Diabetes mellitus inadequate control [Unknown]
  - Wrong product administered [Unknown]
  - Inappropriate schedule of product administration [Unknown]
